FAERS Safety Report 13136135 (Version 1)
Quarter: 2017Q1

REPORT INFORMATION
  Report Type: Report from Study
  Country: ZA (occurrence: ZA)
  Receive Date: 20170121
  Receipt Date: 20170121
  Transmission Date: 20170428
  Serious: Yes (Death, Hospitalization, Other)
  Sender: FDA-Public Use
  Company Number: ZA-AMGEN-ZAFSL2017009981

PATIENT
  Age: 45 Year
  Sex: Male

DRUGS (1)
  1. ARANESP [Suspect]
     Active Substance: DARBEPOETIN ALFA
     Indication: NEPHROGENIC ANAEMIA
     Dosage: 20 MUG, QWK
     Route: 058
     Dates: start: 201607, end: 201611

REACTIONS (2)
  - Death [Fatal]
  - Deep vein thrombosis [Unknown]

NARRATIVE: CASE EVENT DATE: 201611
